FAERS Safety Report 21289974 (Version 1)
Quarter: 2022Q3

REPORT INFORMATION
  Report Type: Spontaneous
  Country: US (occurrence: US)
  Receive Date: 20220902
  Receipt Date: 20220902
  Transmission Date: 20221026
  Serious: Yes (Other)
  Sender: FDA-Public Use
  Company Number: US-PFIZER INC-202201111084

PATIENT
  Age: 51 Year
  Sex: Male
  Weight: 113.4 kg

DRUGS (1)
  1. GABAPENTIN [Suspect]
     Active Substance: GABAPENTIN
     Indication: Neuropathy peripheral
     Dosage: UNK

REACTIONS (4)
  - Off label use [Unknown]
  - Scleroderma [Unknown]
  - Peripheral swelling [Unknown]
  - Urticaria [Unknown]
